FAERS Safety Report 17407434 (Version 2)
Quarter: 2020Q1

REPORT INFORMATION
  Report Type: Spontaneous
  Country: US (occurrence: US)
  Receive Date: 20200212
  Receipt Date: 20200326
  Transmission Date: 20200409
  Serious: Yes (Hospitalization, Other)
  Sender: FDA-Public Use
  Company Number: US-GILEAD-2020-0450622

PATIENT
  Age: 50 Year
  Sex: Male

DRUGS (54)
  1. ATRIPLA [Suspect]
     Active Substance: EFAVIRENZ\EMTRICITABINE\TENOFOVIR DISOPROXIL FUMARATE
     Dosage: 1 DOSAGE FORM, QD
     Route: 048
     Dates: start: 201610, end: 20190212
  2. GENVOYA [Concomitant]
     Active Substance: COBICISTAT\ELVITEGRAVIR\EMTRICITABINE\TENOFOVIR ALAFENAMIDE FUMARATE
  3. AMBIEN [Concomitant]
     Active Substance: ZOLPIDEM TARTRATE
  4. TRIAMCINOLONE [Concomitant]
     Active Substance: TRIAMCINOLONE
  5. MUPIROCIN. [Concomitant]
     Active Substance: MUPIROCIN
  6. FLUTICASONE PROPIONATE. [Concomitant]
     Active Substance: FLUTICASONE PROPIONATE
  7. KADIAN [Concomitant]
     Active Substance: MORPHINE SULFATE
  8. HYDROCHLOROTHIAZIDE. [Concomitant]
     Active Substance: HYDROCHLOROTHIAZIDE
  9. NICOTINE. [Concomitant]
     Active Substance: NICOTINE
  10. MAGNESIUM SULFATE. [Concomitant]
     Active Substance: MAGNESIUM SULFATE
  11. LOSARTAN POTASSIUM. [Concomitant]
     Active Substance: LOSARTAN POTASSIUM
  12. PROAIR HFA [Concomitant]
     Active Substance: ALBUTEROL SULFATE
  13. TERBINAFINE. [Concomitant]
     Active Substance: TERBINAFINE
  14. IBUPROFEN. [Concomitant]
     Active Substance: IBUPROFEN
  15. BENZONATATE. [Concomitant]
     Active Substance: BENZONATATE
  16. DILAUDID [Concomitant]
     Active Substance: HYDROMORPHONE HYDROCHLORIDE
  17. SODIUM CHLORIDE. [Concomitant]
     Active Substance: SODIUM CHLORIDE
  18. DEXTROSE;SODIUM CHLORIDE [Concomitant]
  19. MIDAZOLAM. [Concomitant]
     Active Substance: MIDAZOLAM
  20. FLUMAZENIL. [Concomitant]
     Active Substance: FLUMAZENIL
  21. FLUCONAZOLE. [Concomitant]
     Active Substance: FLUCONAZOLE
  22. CHANTIX [Concomitant]
     Active Substance: VARENICLINE TARTRATE
  23. DIAZEPAM. [Concomitant]
     Active Substance: DIAZEPAM
  24. HEPARIN [Concomitant]
     Active Substance: HEPARIN SODIUM
  25. NALOXONE [Concomitant]
     Active Substance: NALOXONE
  26. PLASMA-LYTE A [Concomitant]
     Active Substance: MAGNESIUM CHLORIDE\POTASSIUM CHLORIDE\SODIUM ACETATE\SODIUM CHLORIDE\SODIUM GLUCONATE
  27. DESCOVY [Concomitant]
     Active Substance: EMTRICITABINE\TENOFOVIR ALAFENAMIDE FUMARATE
  28. CARISOPRODOL. [Concomitant]
     Active Substance: CARISOPRODOL
  29. TIZANIDINE HCL [Concomitant]
     Active Substance: TIZANIDINE HYDROCHLORIDE
  30. ONDANSETRON [Concomitant]
     Active Substance: ONDANSETRON
  31. CEPHALEXIN [CEFALEXIN] [Concomitant]
     Active Substance: CEPHALEXIN
  32. CIPROFLOXACIN. [Concomitant]
     Active Substance: CIPROFLOXACIN
  33. HYDROCODONE/ACETAMINOPHEN [Concomitant]
     Active Substance: ACETAMINOPHEN\HYDROCODONE
  34. LISINOPRIL. [Concomitant]
     Active Substance: LISINOPRIL
  35. GENTAMICIN. [Concomitant]
     Active Substance: GENTAMICIN
  36. KLOR-CON [Concomitant]
     Active Substance: POTASSIUM CHLORIDE
  37. SODIUM GLYCEROPHOSPHATE [Concomitant]
     Active Substance: SODIUM GLYCEROPHOSPHATE
  38. ATRIPLA [Suspect]
     Active Substance: EFAVIRENZ\EMTRICITABINE\TENOFOVIR DISOPROXIL FUMARATE
     Indication: HIV INFECTION
     Dosage: 1 DOSAGE FORM, QD
     Route: 048
     Dates: start: 20110406, end: 201508
  39. TIVICAY [Concomitant]
     Active Substance: DOLUTEGRAVIR SODIUM
  40. SUMATRIPTAN SUCCINATE. [Concomitant]
     Active Substance: SUMATRIPTAN SUCCINATE
  41. NYSTATIN. [Concomitant]
     Active Substance: NYSTATIN
  42. NYSTOP [Concomitant]
     Active Substance: NYSTATIN
  43. PHENAZOPYRIDINE. [Concomitant]
     Active Substance: PHENAZOPYRIDINE
  44. BUPROPION. [Concomitant]
     Active Substance: BUPROPION
  45. SODIUM CHLORIDE 0.9% [Concomitant]
     Active Substance: SODIUM CHLORIDE
  46. CHERATUSSIN AC [Concomitant]
     Active Substance: CODEINE PHOSPHATE\GUAIFENESIN
  47. ESOMEPRAZOLE MAGNESIUM. [Concomitant]
     Active Substance: ESOMEPRAZOLE MAGNESIUM
  48. COLACE [Concomitant]
     Active Substance: DOCUSATE SODIUM
  49. OXYCODONE/APAP [OXYCODONE;PARACETAMOL] [Concomitant]
  50. HYDROXYZINE HCL [Concomitant]
     Active Substance: HYDROXYZINE HYDROCHLORIDE
  51. CYCLOBENZAPRINE. [Concomitant]
     Active Substance: CYCLOBENZAPRINE
  52. TRAMADOL HCL [Concomitant]
     Active Substance: TRAMADOL HYDROCHLORIDE
  53. KETAMINE [Concomitant]
     Active Substance: KETAMINE
  54. FENTANYL. [Concomitant]
     Active Substance: FENTANYL

REACTIONS (10)
  - Fanconi syndrome acquired [Recovered/Resolved]
  - Economic problem [Unknown]
  - Chronic kidney disease [Not Recovered/Not Resolved]
  - Dental caries [Not Recovered/Not Resolved]
  - Anxiety [Unknown]
  - Pain [Unknown]
  - Anhedonia [Unknown]
  - Acute kidney injury [Recovered/Resolved]
  - Emotional distress [Unknown]
  - Tooth loss [Not Recovered/Not Resolved]

NARRATIVE: CASE EVENT DATE: 201812
